FAERS Safety Report 9382682 (Version 1)
Quarter: 2013Q3

REPORT INFORMATION
  Report Type: Spontaneous
  Country: GB (occurrence: GB)
  Receive Date: 20130703
  Receipt Date: 20130703
  Transmission Date: 20140515
  Serious: Yes (Other)
  Sender: FDA-Public Use
  Company Number: GB-GLAXOSMITHKLINE-B0903362A

PATIENT
  Age: 65 Year
  Sex: Male

DRUGS (1)
  1. PAZOPANIB [Suspect]
     Indication: RENAL CELL CARCINOMA
     Route: 065
     Dates: start: 2012, end: 201212

REACTIONS (5)
  - Renal cell carcinoma [Unknown]
  - Metastases to lung [Unknown]
  - Adverse drug reaction [Unknown]
  - Dysgeusia [Unknown]
  - Fatigue [Unknown]
